FAERS Safety Report 10043079 (Version 1)
Quarter: 2014Q1

REPORT INFORMATION
  Report Type: Spontaneous
  Country: US (occurrence: US)
  Receive Date: 20140328
  Receipt Date: 20140328
  Transmission Date: 20141002
  Serious: No
  Sender: FDA-Public Use
  Company Number: US-BIOGENIDEC-2014BI021143

PATIENT
  Sex: Female

DRUGS (15)
  1. AVONEX [Suspect]
     Indication: MULTIPLE SCLEROSIS
     Route: 030
  2. AVONEX [Suspect]
     Indication: MULTIPLE SCLEROSIS
     Route: 030
     Dates: start: 19970401
  3. AVONEX [Suspect]
     Indication: MULTIPLE SCLEROSIS
     Route: 030
     Dates: start: 20130204
  4. BIOTIN FORTE [Concomitant]
  5. CYMBALTA [Concomitant]
  6. ESTRACE [Concomitant]
  7. GABAPENTIN [Concomitant]
  8. LISINOPRIL [Concomitant]
  9. MELOXICAM [Concomitant]
  10. TYLENOL [Concomitant]
  11. VESICARE [Concomitant]
  12. VITAMIN B12 [Concomitant]
  13. VITAMIN D [Concomitant]
  14. XANAX [Concomitant]
  15. ZESTRIL [Concomitant]

REACTIONS (3)
  - Dermatitis allergic [Unknown]
  - Stress [Unknown]
  - Rash pruritic [Unknown]
